FAERS Safety Report 15949492 (Version 1)
Quarter: 2019Q1

REPORT INFORMATION
  Report Type: Spontaneous
  Country: US (occurrence: US)
  Receive Date: 20190211
  Receipt Date: 20190211
  Transmission Date: 20190417
  Serious: No
  Sender: FDA-Public Use
  Company Number: US-PERRIGO-18US014370

PATIENT
  Age: 4 Month
  Sex: Male
  Weight: 7.71 kg

DRUGS (1)
  1. IBUPROFEN. [Suspect]
     Active Substance: IBUPROFEN
     Indication: PYREXIA
     Dosage: 50 MG, SINGLE
     Route: 048
     Dates: start: 20181207, end: 20181207

REACTIONS (2)
  - Product administered to patient of inappropriate age [Recovered/Resolved]
  - Expired product administered [Recovered/Resolved]

NARRATIVE: CASE EVENT DATE: 20181207
